FAERS Safety Report 20773452 (Version 1)
Quarter: 2022Q2

REPORT INFORMATION
  Report Type: Spontaneous
  Country: US (occurrence: None)
  Receive Date: 20220430
  Receipt Date: 20220430
  Transmission Date: 20220721
  Serious: Yes (Hospitalization)
  Sender: FDA-Public Use
  Company Number: None

PATIENT
  Age: 40 Year
  Sex: Female
  Weight: 54.5 kg

DRUGS (6)
  1. CYCLOPHOSPHAMIDE [Suspect]
     Active Substance: CYCLOPHOSPHAMIDE
     Dates: end: 20220325
  2. DOXORUBICIN HYDROCHLORIDE [Suspect]
     Active Substance: DOXORUBICIN HYDROCHLORIDE
     Dates: end: 20220324
  3. ETOPOSIDE [Suspect]
     Active Substance: ETOPOSIDE
     Dates: end: 20220324
  4. PREDNISONE [Suspect]
     Active Substance: PREDNISONE
     Dates: end: 20220325
  5. RITUXIMAB [Suspect]
     Active Substance: RITUXIMAB
     Dates: end: 20220321
  6. VINCRISTINE SULFATE [Suspect]
     Active Substance: VINCRISTINE SULFATE
     Dates: end: 20220324

REACTIONS (5)
  - Palpitations [None]
  - Heart rate increased [None]
  - Body temperature increased [None]
  - Respirovirus test positive [None]
  - Neutropenic sepsis [None]

NARRATIVE: CASE EVENT DATE: 20220401
